FAERS Safety Report 4517590-0 (Version None)
Quarter: 2004Q4

REPORT INFORMATION
  Report Type: 
  Country: None (occurrence: None)
  Receive Date: 20041130
  Receipt Date: 20041111
  Transmission Date: 20050328
  Serious: Yes (Death, Hospitalization)
  Sender: FDA-Public Use
  Company Number: EWC041141418

PATIENT
  Sex: Male

DRUGS (6)
  1. ZYPREXA [Suspect]
     Indication: BIPOLAR DISORDER
     Dosage: 10 MG DAY
     Dates: start: 20040701, end: 20040728
  2. ZYPREXA [Suspect]
     Indication: BIPOLAR DISORDER
     Dosage: 15 MG/1 DAY
     Dates: start: 19980101
  3. LITHIUM CARBONATE [Concomitant]
  4. LAMICTIN (LAMOTRIGINE) [Concomitant]
  5. CONCOR (BISOPROLOL FUMARATE) [Concomitant]
  6. ELTROXIN (LEVOTHYROXINE SODIUM) [Concomitant]

REACTIONS (12)
  - AGGRESSION [None]
  - ANTIPSYCHOTIC DRUG LEVEL INCREASED [None]
  - ANXIETY [None]
  - CANDIDA SEPSIS [None]
  - CONDITION AGGRAVATED [None]
  - DIABETES INSIPIDUS [None]
  - FEELING ABNORMAL [None]
  - HALLUCINATION [None]
  - MANIA [None]
  - RENAL FAILURE [None]
  - RESTLESSNESS [None]
  - STATUS EPILEPTICUS [None]
